FAERS Safety Report 8369509-2 (Version None)
Quarter: 2012Q2

REPORT INFORMATION
  Report Type: 
  Country: None (occurrence: None)
  Receive Date: 20120517
  Receipt Date: 20120517
  Transmission Date: 20120825
  Serious: Yes (Hospitalization)
  Sender: FDA-Public Use
  Company Number: None

PATIENT
  Age: 81 Year
  Sex: Female

DRUGS (2)
  1. NITROFURANTOIN [Suspect]
     Indication: CYSTITIS
     Dosage: 2 X DAY
     Dates: start: 20120328
  2. NITROFURANTOIN [Suspect]
     Indication: CYSTITIS
     Dosage: 2 X DAY
     Dates: start: 20120329

REACTIONS (2)
  - HYPOKINESIA [None]
  - DYSSTASIA [None]
